FAERS Safety Report 9595293 (Version 2)
Quarter: 2013Q4

REPORT INFORMATION
  Report Type: Spontaneous
  Country: EG (occurrence: EG)
  Receive Date: 20131004
  Receipt Date: 20131004
  Transmission Date: 20140711
  Serious: Yes (Other)
  Sender: FDA-Public Use
  Company Number: EG-PFIZER INC-2013261060

PATIENT
  Sex: Male

DRUGS (2)
  1. VIAGRA [Suspect]
     Indication: ERECTILE DYSFUNCTION
     Dosage: 50 MG, UNK
     Dates: start: 2003
  2. AERONIL [Concomitant]
     Indication: ASTHMA
     Dosage: UNK

REACTIONS (6)
  - Retinal haemorrhage [Unknown]
  - Visual impairment [Unknown]
  - Eye pain [Unknown]
  - Headache [Unknown]
  - Angle closure glaucoma [Unknown]
  - Retinal vascular thrombosis [Unknown]
